FAERS Safety Report 7357127-4 (Version None)
Quarter: 2011Q1

REPORT INFORMATION
  Report Type: 
  Country: None (occurrence: None)
  Receive Date: 20110311
  Receipt Date: 20110311
  Transmission Date: 20110831
  Serious: Yes (Hospitalization)
  Sender: FDA-Public Use
  Company Number: None

PATIENT
  Age: 79 Year
  Sex: Male

DRUGS (1)
  1. CEFDINIR [Suspect]
     Dosage: 300 MG BID PO
     Route: 048
     Dates: start: 20101231, end: 20110106

REACTIONS (2)
  - SWOLLEN TONGUE [None]
  - ANGIOEDEMA [None]
